FAERS Safety Report 18864991 (Version 1)
Quarter: 2021Q1

REPORT INFORMATION
  Report Type: Spontaneous
  Country: US (occurrence: US)
  Receive Date: 20210208
  Receipt Date: 20210208
  Transmission Date: 20210420
  Serious: No
  Sender: FDA-Public Use
  Company Number: US-KALA PHARAMACEUTICALS-2020KLA00056

PATIENT
  Age: 70 Year
  Sex: Female
  Weight: 54.42 kg

DRUGS (12)
  1. EYSUVIS [Suspect]
     Active Substance: LOTEPREDNOL ETABONATE
     Dosage: 1 DROP, 2X/DAY, IN EACH EYE
     Route: 047
  2. PATADAY [Concomitant]
     Active Substance: OLOPATADINE HYDROCHLORIDE
     Dosage: UNK
     Route: 047
     Dates: start: 2020
  3. AMLODIPINE [Concomitant]
     Active Substance: AMLODIPINE BESYLATE
     Dosage: 5 MG
  4. EYSUVIS [Suspect]
     Active Substance: LOTEPREDNOL ETABONATE
     Dosage: 1 DROP, 4X/DAY, IN EACH EYE
     Route: 047
     Dates: end: 20201217
  5. OVER THE COUNTER VITAMINS [Concomitant]
  6. AMLODIPINE [Concomitant]
     Active Substance: AMLODIPINE BESYLATE
     Dosage: 7.5 MG
  7. EYSUVIS [Suspect]
     Active Substance: LOTEPREDNOL ETABONATE
     Indication: LACRIMATION INCREASED
     Dosage: 1 DROP, 4X/DAY, IN EACH EYE, FOR THE FIRST 3 DAYS
     Route: 047
     Dates: start: 20201215, end: 20201217
  8. EYSUVIS [Suspect]
     Active Substance: LOTEPREDNOL ETABONATE
     Dosage: 1 DROP, 3X/DAY, IN EACH EYE
     Route: 047
  9. EYSUVIS [Suspect]
     Active Substance: LOTEPREDNOL ETABONATE
     Dosage: 1 DROP, 3X/DAY, IN EACH EYE
     Route: 047
  10. XIIDRA [Concomitant]
     Active Substance: LIFITEGRAST
     Dosage: UNK
     Route: 047
     Dates: start: 2019
  11. EYSUVIS [Suspect]
     Active Substance: LOTEPREDNOL ETABONATE
     Dosage: 1 DROP, 2X/DAY, IN EACH EYE
     Route: 047
  12. EYSUVIS [Suspect]
     Active Substance: LOTEPREDNOL ETABONATE
     Dosage: 2 DROPS
     Route: 047
     Dates: start: 20201218, end: 20201218

REACTIONS (3)
  - Off label use [Not Recovered/Not Resolved]
  - Ocular discomfort [Recovered/Resolved]
  - Product dose omission issue [Recovered/Resolved]

NARRATIVE: CASE EVENT DATE: 20201215
